FAERS Safety Report 8601121 (Version 2)
Quarter: 2015Q1

REPORT INFORMATION
  Report Type: Report from Study
  Country: US (occurrence: US)
  Receive Date: 20120606
  Receipt Date: 20150318
  Transmission Date: 20150721
  Serious: Yes (Death)
  Sender: FDA-Public Use
  Company Number: US-ROCHE-1075498

PATIENT
  Age: 50 Year
  Sex: Female

DRUGS (5)
  1. DIPHENHYDRAMINE [Concomitant]
     Active Substance: DIPHENHYDRAMINE
     Route: 042
  2. CLINDAMYCIN [Concomitant]
     Active Substance: CLINDAMYCIN\CLINDAMYCIN PHOSPHATE
     Indication: RASH
     Dosage: 2-3 TIMES A DAY
     Route: 061
  3. BENADRYL [Concomitant]
     Active Substance: DIPHENHYDRAMINE HYDROCHLORIDE
     Route: 048
  4. TARCEVA [Suspect]
     Active Substance: ERLOTINIB HYDROCHLORIDE
     Indication: PRODUCT USED FOR UNKNOWN INDICATION
     Route: 065
     Dates: start: 20100305
  5. AVASTIN [Suspect]
     Active Substance: BEVACIZUMAB
     Indication: NON-SMALL CELL LUNG CANCER
     Dosage: LAST INFUSION: 16/APR/2010
     Route: 042
     Dates: start: 20100305, end: 20100416

REACTIONS (14)
  - Thermal burn [Unknown]
  - Decreased appetite [Unknown]
  - Dry mouth [Unknown]
  - Nocturia [Unknown]
  - Weight decreased [Unknown]
  - Blood pressure increased [Unknown]
  - Dermatitis acneiform [Unknown]
  - Asthenia [Unknown]
  - Death [Fatal]
  - Chest discomfort [Unknown]
  - Diarrhoea [Recovering/Resolving]
  - Vulvovaginal discomfort [Unknown]
  - Dysuria [Unknown]
  - Flank pain [Recovering/Resolving]

NARRATIVE: CASE EVENT DATE: 20110509
